FAERS Safety Report 7646413-6 (Version None)
Quarter: 2011Q3

REPORT INFORMATION
  Report Type: 
  Country: None (occurrence: None)
  Receive Date: 20110801
  Receipt Date: 20110720
  Transmission Date: 20111222
  Serious: Yes (Other)
  Sender: FDA-Public Use
  Company Number: CA-JNJFOC-20110401294

PATIENT
  Sex: Male
  Weight: 96.4 kg

DRUGS (16)
  1. REMICADE [Suspect]
     Route: 042
     Dates: start: 20110201
  2. REMICADE [Suspect]
     Route: 042
     Dates: start: 20110526
  3. GLYBURIDE [Concomitant]
  4. CELEBREX [Concomitant]
  5. REMICADE [Suspect]
     Route: 042
     Dates: start: 20041108
  6. REMICADE [Suspect]
     Route: 042
     Dates: start: 20110526
  7. METHOTREXATE [Concomitant]
     Route: 058
  8. LIPITOR [Concomitant]
  9. METOPROLOL TARTRATE [Concomitant]
  10. METFORMIN HCL [Concomitant]
  11. FOLIC ACID [Concomitant]
  12. NORVASC [Concomitant]
  13. SYNTHROID [Concomitant]
  14. REMICADE [Suspect]
     Indication: RHEUMATOID ARTHRITIS
     Route: 042
  15. TYLENOL-500 [Concomitant]
  16. HYDROCHLOROTHIAZIDE [Concomitant]

REACTIONS (7)
  - ASTHENIA [None]
  - DIARRHOEA [None]
  - VOMITING [None]
  - DIZZINESS [None]
  - HYPOAESTHESIA [None]
  - HEADACHE [None]
  - NAUSEA [None]
